FAERS Safety Report 8827486 (Version 2)
Quarter: 2012Q4

REPORT INFORMATION
  Report Type: Report from Study
  Country: GB (occurrence: GB)
  Receive Date: 20121005
  Receipt Date: 20121022
  Transmission Date: 20130627
  Serious: Yes (Hospitalization)
  Sender: FDA-Public Use
  Company Number: GB-ROCHE-1107645

PATIENT
  Age: 45 Year
  Sex: Female
  Weight: 56.2 kg

DRUGS (15)
  1. TRASTUZUMAB [Suspect]
     Indication: BREAST CANCER
     Dosage: Date of most recent dose : 20/Sep/2012
     Route: 042
     Dates: start: 20120627
  2. ERIBULIN [Suspect]
     Indication: BREAST CANCER
     Dosage: Date of most recent dose : 20/Sep/2012
     Route: 042
     Dates: start: 20120627
  3. OXYCODONE [Concomitant]
     Indication: BACK PAIN
  4. NAPROXEN [Concomitant]
     Indication: BACK PAIN
  5. DEXAMETHASONE [Concomitant]
     Indication: LETHARGY
  6. OMEPRAZOLE [Concomitant]
     Indication: DYSPEPSIA
  7. ZOPICLONE [Concomitant]
     Indication: INSOMNIA
  8. DOCUSATE [Concomitant]
     Indication: CONSTIPATION
  9. PARACETAMOL [Concomitant]
     Indication: BACK PAIN
  10. CHLORPHENAMINE [Concomitant]
     Indication: PROPHYLAXIS
  11. IBANDRONATE [Concomitant]
     Indication: BONE PAIN
  12. ZOMETA [Concomitant]
  13. FILGRASTIM [Concomitant]
     Indication: COLONY STIMULATING FACTOR PROPHYLAXIS
  14. FLUCONAZOLE [Concomitant]
     Indication: VULVOVAGINAL CANDIDIASIS
     Route: 065
     Dates: start: 20120904, end: 20120904
  15. CIPRO [Concomitant]
     Indication: PROPHYLAXIS
     Route: 065
     Dates: start: 201209

REACTIONS (2)
  - Breast cellulitis [Recovered/Resolved]
  - Device related infection [Recovered/Resolved]
